FAERS Safety Report 8604762-9 (Version None)
Quarter: 2012Q3

REPORT INFORMATION
  Report Type: 
  Country: None (occurrence: None)
  Receive Date: 20120820
  Receipt Date: 20120816
  Transmission Date: 20120928
  Serious: No
  Sender: FDA-Public Use
  Company Number: US-PFIZER INC-2012201300

PATIENT
  Age: 50 Year
  Sex: Female
  Weight: 68.027 kg

DRUGS (1)
  1. CELEBREX [Suspect]
     Indication: PSORIATIC ARTHROPATHY
     Dosage: 200 MG, 2X/DAY
     Route: 048
     Dates: start: 20120813, end: 20120815

REACTIONS (2)
  - GASTRIC DISORDER [None]
  - NAUSEA [None]
